FAERS Safety Report 24593670 (Version 1)
Quarter: 2024Q4

REPORT INFORMATION
  Report Type: Spontaneous
  Country: CN (occurrence: CN)
  Receive Date: 20241108
  Receipt Date: 20241108
  Transmission Date: 20250114
  Serious: Yes (Other)
  Sender: BAXTER
  Company Number: None

PATIENT
  Age: 13 Year
  Sex: Male
  Weight: 47.5 kg

DRUGS (1)
  1. IFOSFAMIDE [Suspect]
     Active Substance: IFOSFAMIDE
     Indication: Neoplasm malignant
     Dosage: 2.3 G, ONCE DAILY
     Route: 041
     Dates: start: 20241018, end: 20241022

REACTIONS (4)
  - Myelosuppression [Unknown]
  - Cystitis haemorrhagic [Unknown]
  - Haematuria [Recovering/Resolving]
  - Urinary tract infection [Unknown]

NARRATIVE: CASE EVENT DATE: 20241024
